FAERS Safety Report 17989531 (Version 1)
Quarter: 2020Q3

REPORT INFORMATION
  Report Type: Not Available
  Country: US (occurrence: US)
  Receive Date: 20200707
  Receipt Date: 20200707
  Transmission Date: 20201103
  Serious: No
  Sender: FDA-Public Use
  Company Number: US-NEUROCRINE BIOSCIENCES INC.-2020NBI02170

PATIENT
  Age: 69 Year
  Sex: Male

DRUGS (1)
  1. INGREZZA [Suspect]
     Active Substance: VALBENAZINE
     Indication: TARDIVE DYSKINESIA
     Dosage: (1) 40 MG AND (1) 80 MG CAPSULE, TAKEN TOGETHER DAILY
     Route: 048
     Dates: start: 20171030

REACTIONS (3)
  - Prescribed overdose [Unknown]
  - Tardive dyskinesia [Unknown]
  - Therapeutic product effect decreased [Unknown]
